FAERS Safety Report 12297219 (Version 1)
Quarter: 2016Q2

REPORT INFORMATION
  Report Type: Spontaneous
  Country: CN (occurrence: CN)
  Receive Date: 20160422
  Receipt Date: 20160422
  Transmission Date: 20160815
  Serious: Yes (Hospitalization)
  Sender: FDA-Public Use
  Company Number: CN-BAYER-2016-072205

PATIENT
  Sex: Male

DRUGS (2)
  1. METHYLPREDNISOLONE. [Suspect]
     Active Substance: METHYLPREDNISOLONE
     Indication: INFECTION
     Dosage: 40 MG, QD
     Route: 041
     Dates: start: 20150904, end: 20150906
  2. AVELOX [Suspect]
     Active Substance: MOXIFLOXACIN HYDROCHLORIDE
     Indication: INFECTION
     Dosage: 250 ML, QD
     Route: 041
     Dates: start: 20150904, end: 20150906

REACTIONS (1)
  - Mental disorder [Recovering/Resolving]

NARRATIVE: CASE EVENT DATE: 20150906
